FAERS Safety Report 6039929-X (Version None)
Quarter: 2009Q1

REPORT INFORMATION
  Report Type: 
  Country: None (occurrence: None)
  Receive Date: 20090116
  Receipt Date: 20080708
  Transmission Date: 20090719
  Serious: No
  Sender: FDA-Public Use
  Company Number: US-BRISTOL-MYERS SQUIBB COMPANY-13417191

PATIENT
  Age: 24 Year
  Sex: Female

DRUGS (6)
  1. ABILIFY [Suspect]
     Indication: SCHIZOAFFECTIVE DISORDER
  2. OLANZAPINE [Concomitant]
  3. MARIJUANA [Concomitant]
  4. PRENATAL [Concomitant]
  5. FLUNISOLIDE [Concomitant]
     Route: 048
  6. VICODIN [Concomitant]
     Indication: MIGRAINE

REACTIONS (3)
  - BLOOD PRESSURE INCREASED [None]
  - NORMAL NEWBORN [None]
  - PREGNANCY [None]
